FAERS Safety Report 25515095 (Version 1)
Quarter: 2025Q3

REPORT INFORMATION
  Report Type: Spontaneous
  Country: GB (occurrence: GB)
  Receive Date: 20250703
  Receipt Date: 20250703
  Transmission Date: 20251021
  Serious: Yes (Other)
  Sender: EMD SERONO INC
  Company Number: GB-MHRA-TPP4263160C24500265YC1750951569750

PATIENT
  Age: 62 Year
  Sex: Male
  Weight: 127 kg

DRUGS (5)
  1. METFORMIN [Suspect]
     Active Substance: METFORMIN HYDROCHLORIDE
     Indication: Ill-defined disorder
     Dosage: TAKE ONE WITH BREAKFAST AND ONE WITH EVENING MEAL
     Dates: start: 20250516
  2. LOSARTAN [Concomitant]
     Active Substance: LOSARTAN
     Indication: Ill-defined disorder
     Dosage: TAKE ONE DAILY
     Dates: start: 20190704
  3. TRAMADOL [Concomitant]
     Active Substance: TRAMADOL
     Indication: Ill-defined disorder
     Dosage: TAKE FOUR TWICE DAILY
     Dates: start: 20190704
  4. PRAVASTATIN [Concomitant]
     Active Substance: PRAVASTATIN
     Indication: Ill-defined disorder
     Dosage: TAKE ONE AT NIGHT
     Dates: start: 20210112
  5. BUPEAZE [Concomitant]
     Indication: Ill-defined disorder
     Dosage: APPLY ONE PATCH EVERY 96 HOURS. APPLY TO DRY, N...
     Dates: start: 20240617

REACTIONS (1)
  - Myalgia [Recovering/Resolving]
